FAERS Safety Report 21630856 (Version 6)
Quarter: 2025Q1

REPORT INFORMATION
  Report Type: Report from Study
  Country: DE (occurrence: DE)
  Receive Date: 20221123
  Receipt Date: 20250116
  Transmission Date: 20250408
  Serious: No
  Sender: ROCHE
  Company Number: DE-ROCHE-3091934

PATIENT
  Age: 53 Year
  Sex: Female

DRUGS (6)
  1. OCREVUS [Suspect]
     Active Substance: OCRELIZUMAB
     Indication: Relapsing-remitting multiple sclerosis
     Route: 042
     Dates: start: 20220412
  2. OCREVUS [Suspect]
     Active Substance: OCRELIZUMAB
     Route: 058
     Dates: start: 20220412
  3. METFORMIN [Concomitant]
     Active Substance: METFORMIN HYDROCHLORIDE
  4. AMLODIPINE BESYLATE\CANDESARTAN CILEXETIL [Concomitant]
     Active Substance: AMLODIPINE BESYLATE\CANDESARTAN CILEXETIL
     Dosage: 8 MG/5 MG
  5. ROSUVASTATIN [Concomitant]
     Active Substance: ROSUVASTATIN
  6. DAPAGLIFLOZIN [Concomitant]
     Active Substance: DAPAGLIFLOZIN

REACTIONS (6)
  - Fatigue [Recovered/Resolved]
  - Nasopharyngitis [Recovered/Resolved]
  - COVID-19 [Recovered/Resolved]
  - Cognitive disorder [Not Recovered/Not Resolved]
  - Cataract [Recovered/Resolved]
  - Muscular weakness [Not Recovered/Not Resolved]

NARRATIVE: CASE EVENT DATE: 20220412
